FAERS Safety Report 7640975-0 (Version None)
Quarter: 2011Q3

REPORT INFORMATION
  Report Type: 
  Country: None (occurrence: None)
  Receive Date: 20110727
  Receipt Date: 20110727
  Transmission Date: 20111222
  Serious: No
  Sender: FDA-Public Use
  Company Number: None

PATIENT
  Sex: Female
  Weight: 75.9775 kg

DRUGS (1)
  1. CEFDINIR [Suspect]
     Indication: PHARYNGITIS STREPTOCOCCAL
     Dosage: 300MG TWICE DAILY
     Dates: start: 20110621, end: 20110627

REACTIONS (9)
  - APATHY [None]
  - DYSPHONIA [None]
  - LIP SWELLING [None]
  - IMPAIRED DRIVING ABILITY [None]
  - CONVULSION [None]
  - HEADACHE [None]
  - ARTHRALGIA [None]
  - IMPAIRED WORK ABILITY [None]
  - FAMILY STRESS [None]
